FAERS Safety Report 4803453-X (Version None)
Quarter: 2005Q4

REPORT INFORMATION
  Report Type: 
  Country: None (occurrence: None)
  Receive Date: 20051013
  Receipt Date: 20051002
  Transmission Date: 20060501
  Serious: No
  Sender: FDA-Public Use
  Company Number: 051008-0001002

PATIENT

DRUGS (1)
  1. PENTOBARBITAL SODIUM [Suspect]
     Indication: SEDATION
     Dosage: PRN; PO
     Route: 048

REACTIONS (1)
  - PROCEDURAL COMPLICATION [None]
